FAERS Safety Report 9729803 (Version 3)
Quarter: 2015Q3

REPORT INFORMATION
  Report Type: Spontaneous
  Country: US (occurrence: US)
  Receive Date: 20131204
  Receipt Date: 20150804
  Transmission Date: 20151125
  Serious: No
  Sender: FDA-Public Use
  Company Number: US-GILEAD-2009-0022545

PATIENT
  Age: 87 Year
  Sex: Female

DRUGS (14)
  1. HYDRALAZINE HCL [Concomitant]
     Active Substance: HYDRALAZINE HYDROCHLORIDE
     Dates: start: 20080205
  2. FOLIC ACID. [Concomitant]
     Active Substance: FOLIC ACID
     Dates: start: 20090428
  3. LETAIRIS [Suspect]
     Active Substance: AMBRISENTAN
     Indication: PULMONARY HYPERTENSION
     Dates: start: 20081216
  4. OSCAL [Concomitant]
     Active Substance: CALCIUM CARBONATE
     Dates: start: 20050830
  5. CARVEDILOL. [Concomitant]
     Active Substance: CARVEDILOL
     Dates: start: 20090428
  6. PLAVIX [Concomitant]
     Active Substance: CLOPIDOGREL BISULFATE
     Dates: start: 20090428
  7. SPIRONOLACTONE. [Concomitant]
     Active Substance: SPIRONOLACTONE
     Dates: start: 20090428
  8. FUROSEMIDE. [Concomitant]
     Active Substance: FUROSEMIDE
     Indication: CARDIAC FAILURE
     Dates: start: 20080205
  9. PATANOL [Concomitant]
     Active Substance: OLOPATADINE HYDROCHLORIDE
     Dates: start: 20070912
  10. LOVAZA [Concomitant]
     Active Substance: OMEGA-3-ACID ETHYL ESTERS
     Dates: start: 20090428
  11. ACTONEL [Concomitant]
     Active Substance: RISEDRONATE SODIUM
     Indication: OSTEOPOROSIS
     Dates: start: 20090428
  12. CRESTOR [Concomitant]
     Active Substance: ROSUVASTATIN CALCIUM
     Dates: start: 20090526
  13. OLOPATADINE HCL [Concomitant]
     Active Substance: OLOPATADINE HYDROCHLORIDE
     Dates: start: 20080123
  14. EXELON [Concomitant]
     Active Substance: RIVASTIGMINE TARTRATE
     Indication: DEMENTIA ALZHEIMER^S TYPE
     Dates: start: 20090428

REACTIONS (1)
  - Headache [Unknown]
